FAERS Safety Report 11129490 (Version 1)
Quarter: 2015Q2

REPORT INFORMATION
  Report Type: Spontaneous
  Country: DE (occurrence: DE)
  Receive Date: 20150521
  Receipt Date: 20150521
  Transmission Date: 20150821
  Serious: Yes (Hospitalization)
  Sender: FDA-Public Use
  Company Number: GXKR2015DE002490

PATIENT

DRUGS (2)
  1. AMINEURIN [Suspect]
     Active Substance: AMITRIPTYLINE HYDROCHLORIDE
     Dosage: MATERNAL DOSE: 150 MG/DAY
     Route: 064
  2. AMINEURIN [Suspect]
     Active Substance: AMITRIPTYLINE HYDROCHLORIDE
     Dosage: UNK UKN, UNK
     Route: 063

REACTIONS (6)
  - Tearfulness [Not Recovered/Not Resolved]
  - Restlessness [Not Recovered/Not Resolved]
  - Irritability [Not Recovered/Not Resolved]
  - Foetal exposure during pregnancy [Unknown]
  - Exposure during breast feeding [Unknown]
  - Drug withdrawal syndrome [Not Recovered/Not Resolved]
